FAERS Safety Report 23689374 (Version 7)
Quarter: 2024Q2

REPORT INFORMATION
  Report Type: Report from Study
  Country: US (occurrence: US)
  Receive Date: 20240331
  Receipt Date: 20240628
  Transmission Date: 20240716
  Serious: Yes (Other)
  Sender: FDA-Public Use
  Company Number: US-JNJFOC-20240366743

PATIENT
  Age: 38 Year
  Sex: Female
  Weight: 56.75 kg

DRUGS (2)
  1. STELARA [Suspect]
     Active Substance: USTEKINUMAB
     Indication: Crohn^s disease
     Dosage: NEXT SUBCUTANEOUS DOSE WAS ADMINISTERED ON-9/FEB/2024
     Route: 058
     Dates: start: 20231215
  2. STELARA [Suspect]
     Active Substance: USTEKINUMAB
     Route: 058
     Dates: start: 20240413

REACTIONS (4)
  - Haematochezia [Not Recovered/Not Resolved]
  - Needle issue [Unknown]
  - Device leakage [Unknown]
  - Product dose omission issue [Unknown]

NARRATIVE: CASE EVENT DATE: 20240101
